FAERS Safety Report 6624570-8 (Version None)
Quarter: 2010Q1

REPORT INFORMATION
  Report Type: 
  Country: None (occurrence: None)
  Receive Date: 20100310
  Receipt Date: 20091001
  Transmission Date: 20100710
  Serious: No
  Sender: FDA-Public Use
  Company Number: US-BIOGENIDEC-2009BI031562

PATIENT
  Age: 34 Year
  Sex: Female

DRUGS (5)
  1. AVONEX [Suspect]
     Indication: MULTIPLE SCLEROSIS
     Route: 030
     Dates: start: 20090910
  2. METHADONE HYDROCHLORIDE [Concomitant]
     Indication: DRUG DEPENDENCE
     Route: 048
     Dates: start: 20000101, end: 20050101
  3. METHADONE HYDROCHLORIDE [Concomitant]
     Dates: start: 20070101
  4. CYMBALTA [Concomitant]
     Indication: DEPRESSION
     Route: 048
     Dates: start: 20070101
  5. KLONOPIN [Concomitant]
     Indication: ANXIETY
     Route: 048
     Dates: start: 20070101

REACTIONS (4)
  - GAIT DISTURBANCE [None]
  - INSOMNIA [None]
  - PAIN [None]
  - PYREXIA [None]
